FAERS Safety Report 6409229-4 (Version None)
Quarter: 2009Q4

REPORT INFORMATION
  Report Type: 
  Country: None (occurrence: None)
  Receive Date: 20091021
  Receipt Date: 20091016
  Transmission Date: 20100525
  Serious: Yes (Hospitalization)
  Sender: FDA-Public Use
  Company Number: FR-WYE-G04643109

PATIENT
  Sex: Female

DRUGS (8)
  1. EFFEXOR [Suspect]
     Route: 048
     Dates: end: 20090817
  2. TEMESTA [Concomitant]
     Dosage: UNKNOWN
  3. FOSAVANCE [Concomitant]
     Dosage: UNKNOWN
  4. KARDEGIC [Concomitant]
     Dosage: UNKNOWN
  5. METFORMIN HCL [Concomitant]
     Dosage: UNKNOWN
  6. FENOFIBRATE [Concomitant]
     Dosage: UNKNOWN
  7. DEPAMIDE [Suspect]
     Route: 048
     Dates: end: 20090817
  8. NEXIUM [Concomitant]
     Dosage: UNKNOWN

REACTIONS (3)
  - CONFUSIONAL STATE [None]
  - DYSSTASIA [None]
  - EXTRAPYRAMIDAL DISORDER [None]
